FAERS Safety Report 10243968 (Version 3)
Quarter: 2014Q3

REPORT INFORMATION
  Report Type: Spontaneous
  Country: CA (occurrence: CA)
  Receive Date: 20140618
  Receipt Date: 20140805
  Transmission Date: 20150326
  Serious: No
  Sender: FDA-Public Use
  Company Number: CA-SA-2014SA069279

PATIENT
  Age: 4 Year
  Sex: Male
  Weight: 24 kg

DRUGS (2)
  1. TUBERCULIN PPD [Suspect]
     Active Substance: TUBERCULIN PURIFIED PROTEIN DERIVATIVE
     Indication: TUBERCULIN TEST
     Route: 023
  2. QUADRACEL [Suspect]
     Active Substance: DIPHTHERIA AND TETANUS TOXOIDS AND ACELLULAR PERTUSSIS ADSORBED AND INACTIVATED POLIOVIRUS VACCINE
     Indication: IMMUNISATION
     Route: 030
     Dates: start: 20140521, end: 20140521

REACTIONS (6)
  - Extensive swelling of vaccinated limb [Recovered/Resolved]
  - Induration [Recovered/Resolved]
  - Inflammation [Recovered/Resolved]
  - Vaccination site warmth [Recovered/Resolved]
  - Vaccination site pain [Recovered/Resolved]
  - Vaccination site erythema [Recovered/Resolved]
